FAERS Safety Report 8375135-1 (Version None)
Quarter: 2012Q2

REPORT INFORMATION
  Report Type: 
  Country: None (occurrence: None)
  Receive Date: 20120521
  Receipt Date: 20120514
  Transmission Date: 20120825
  Serious: Yes (Other)
  Sender: FDA-Public Use
  Company Number: GB-ELI_LILLY_AND_COMPANY-GB201204008092

PATIENT
  Sex: Female
  Weight: 112 kg

DRUGS (8)
  1. RISEDRONATE SODIUM [Concomitant]
  2. CALCIUM CARBONATE [Concomitant]
  3. FOLIC ACID [Concomitant]
  4. BENDROFLUAZIDE [Concomitant]
  5. LOSARTAN POTASSIUM [Concomitant]
  6. METHOTREXATE [Concomitant]
  7. METFORMIN HCL [Concomitant]
  8. BYDUREON [Suspect]
     Dosage: 2 MG, WEEKLY (1/W)
     Route: 058
     Dates: start: 20120418, end: 20120418

REACTIONS (3)
  - DYSPNOEA [None]
  - DIZZINESS [None]
  - SWOLLEN TONGUE [None]
